FAERS Safety Report 18159596 (Version 3)
Quarter: 2020Q3

REPORT INFORMATION
  Report Type: Spontaneous
  Country: US (occurrence: US)
  Receive Date: 20200818
  Receipt Date: 20200824
  Transmission Date: 20201103
  Serious: Yes (Hospitalization, Other)
  Sender: FDA-Public Use
  Company Number: US-SA-2020SA214137

PATIENT

DRUGS (3)
  1. BENADRYL [Concomitant]
     Active Substance: DIPHENHYDRAMINE HYDROCHLORIDE
     Indication: PREMEDICATION
     Route: 042
  2. ACETAMINOPHEN. [Concomitant]
     Active Substance: ACETAMINOPHEN
     Indication: PREMEDICATION
     Route: 042
  3. ALDURAZYME [Suspect]
     Active Substance: LARONIDASE
     Route: 065

REACTIONS (4)
  - Sepsis [Unknown]
  - Fungal skin infection [Recovered/Resolved]
  - Rash [Unknown]
  - Catheter placement [Unknown]

NARRATIVE: CASE EVENT DATE: 2020
